FAERS Safety Report 10046901 (Version 1)
Quarter: 2014Q1

REPORT INFORMATION
  Report Type: Spontaneous
  Country: US (occurrence: None)
  Receive Date: 20140328
  Receipt Date: 20140328
  Transmission Date: 20141002
  Serious: Yes (Other)
  Sender: FDA-Public Use
  Company Number: None

PATIENT
  Age: 45 Year
  Sex: Male
  Weight: 90.72 kg

DRUGS (1)
  1. ZANTAC [Suspect]
     Indication: GASTROOESOPHAGEAL REFLUX DISEASE
     Dosage: 6 PILLS TWICE DAILY TAKEN BY MOUTH
     Route: 048
     Dates: start: 20140325, end: 20140327

REACTIONS (4)
  - Flatulence [None]
  - Defaecation urgency [None]
  - Mucous stools [None]
  - Haematochezia [None]
